FAERS Safety Report 14038519 (Version 3)
Quarter: 2017Q4

REPORT INFORMATION
  Report Type: Spontaneous
  Country: BR (occurrence: BR)
  Receive Date: 20171004
  Receipt Date: 20171121
  Transmission Date: 20180321
  Serious: Yes (Other)
  Sender: FDA-Public Use
  Company Number: BR-PFIZER INC-2017421306

PATIENT
  Age: 65 Year
  Sex: Male

DRUGS (5)
  1. XALATAN [Suspect]
     Active Substance: LATANOPROST
     Indication: GLAUCOMA
     Dosage: UNK
  2. LATANOPROST. [Suspect]
     Active Substance: LATANOPROST
     Indication: GLAUCOMA
  3. GANFORT [Concomitant]
     Active Substance: BIMATOPROST\TIMOLOL
     Dosage: ONE DROP IN BOTH EYES CONTINUOUS USE DAILY
  4. TIMOLOL MALEATE. [Concomitant]
     Active Substance: TIMOLOL MALEATE
     Dosage: UNK
  5. OCUPRESS [Concomitant]
     Active Substance: CARTEOLOL HYDROCHLORIDE
     Dosage: ONE DROP IN BOTH EYES TWICE PER DAY

REACTIONS (4)
  - Renal disorder [Unknown]
  - Eyelid oedema [Unknown]
  - Diabetes mellitus [Not Recovered/Not Resolved]
  - Intraocular pressure increased [Unknown]

NARRATIVE: CASE EVENT DATE: 2017
